FAERS Safety Report 6919743-0 (Version None)
Quarter: 2010Q3

REPORT INFORMATION
  Report Type: 
  Country: None (occurrence: None)
  Receive Date: 20100810
  Receipt Date: 20100810
  Transmission Date: 20110219
  Serious: Yes (Hospitalization)
  Sender: FDA-Public Use
  Company Number: None

PATIENT
  Age: 56 Year
  Sex: Female
  Weight: 65 kg

DRUGS (9)
  1. BEVACIZUMAB 25MG/ML - 4ML GENENTECH [Suspect]
     Indication: RECTAL CANCER
     Dosage: 720MG ONCE IV
     Route: 042
     Dates: start: 20100316
  2. FLUOROURACIL [Suspect]
     Indication: RECTAL CANCER
     Dosage: 4272MG ONCE IV
     Route: 042
     Dates: start: 20100316
  3. IRINOTECAN HCL [Suspect]
     Indication: RECTAL CANCER
     Dosage: 320MG ONCE IV
     Route: 042
     Dates: start: 20100316
  4. MIRACLE MOUTHWASH [Concomitant]
  5. DIPHENOXYLATE [Concomitant]
  6. ZOLPIDEM [Concomitant]
  7. LORAZEPAM [Concomitant]
  8. FUROSEMIDE [Concomitant]
  9. POTASSIUM CHLORIDE [Concomitant]

REACTIONS (6)
  - ANAEMIA [None]
  - DEHYDRATION [None]
  - DIARRHOEA [None]
  - NEUTROPENIA [None]
  - NO THERAPEUTIC RESPONSE [None]
  - THROMBOCYTOPENIA [None]
